FAERS Safety Report 9435102 (Version 1)
Quarter: 2013Q3

REPORT INFORMATION
  Report Type: Spontaneous
  Country: US (occurrence: US)
  Receive Date: 20130801
  Receipt Date: 20130801
  Transmission Date: 20140515
  Serious: Yes (Hospitalization, Other)
  Sender: FDA-Public Use
  Company Number: US-PFIZER INC-2013206099

PATIENT
  Age: 56 Year
  Sex: Male

DRUGS (2)
  1. RAPAMUNE [Suspect]
     Indication: IMMUNOSUPPRESSION
     Dosage: UNK
     Dates: start: 20090606, end: 20091205
  2. RAPAMUNE [Suspect]
     Dosage: 5 MG, 1X/DAY
     Route: 048
     Dates: start: 200911

REACTIONS (9)
  - Renal failure [Unknown]
  - Thrombocytopenia [Unknown]
  - Pancytopenia [Unknown]
  - Blood creatinine increased [Unknown]
  - Anaemia [Unknown]
  - Fatigue [Unknown]
  - Dyspnoea [Unknown]
  - Leukopenia [Unknown]
  - Hypertension [Unknown]
